FAERS Safety Report 10505328 (Version 1)
Quarter: 2014Q3

REPORT INFORMATION
  Report Type: Spontaneous
  Country: US (occurrence: None)
  Receive Date: 20140915
  Receipt Date: 20140915
  Transmission Date: 20150326
  Serious: Yes (Other)
  Sender: FDA-Public Use
  Company Number: 2014-US-007759

PATIENT
  Age: 39 Year
  Sex: Female
  Weight: 76.2 kg

DRUGS (4)
  1. XYREM [Suspect]
     Active Substance: SODIUM OXYBATE
     Indication: NARCOLEPSY
     Route: 048
     Dates: start: 20140617
  2. METRONIDAZOLE. [Concomitant]
     Active Substance: METRONIDAZOLE
  3. MODAFINIL. [Concomitant]
     Active Substance: MODAFINIL
  4. NASCOBAL (CYANOCOBALAMIN) [Concomitant]

REACTIONS (6)
  - Dyspnoea [None]
  - Headache [None]
  - Vomiting [None]
  - Dizziness [None]
  - Loss of consciousness [None]
  - Hypertension [None]

NARRATIVE: CASE EVENT DATE: 20140618
